FAERS Safety Report 7673554-X (Version None)
Quarter: 2011Q3

REPORT INFORMATION
  Report Type: 
  Country: None (occurrence: None)
  Receive Date: 20110810
  Receipt Date: 20110727
  Transmission Date: 20111222
  Serious: No
  Sender: FDA-Public Use
  Company Number: NL-ELI_LILLY_AND_COMPANY-NL201107003207

PATIENT
  Sex: Female

DRUGS (8)
  1. PERINDOPRIL [Concomitant]
     Dosage: 4 MG, UNK
  2. SOTALOL HCL [Concomitant]
  3. POTASSIUM CHLORIDE [Concomitant]
  4. LEVOTHYROXINE SODIUM [Concomitant]
     Dosage: 50 MG, UNK
     Dates: start: 20100101
  5. PHENPROCOUMON [Concomitant]
  6. SODIUM CHLORIDE [Concomitant]
  7. POLYETHYLENE GLYCOL [Concomitant]
  8. FORTEO [Suspect]
     Indication: OSTEOPOROSIS
     Dosage: 20 UG, QD
     Route: 058
     Dates: start: 20110707

REACTIONS (4)
  - NAUSEA [None]
  - MUSCULAR WEAKNESS [None]
  - LIMB DISCOMFORT [None]
  - HEADACHE [None]
